FAERS Safety Report 8813726 (Version 3)
Quarter: 2016Q1

REPORT INFORMATION
  Report Type: Spontaneous
  Country: US (occurrence: US)
  Receive Date: 20120928
  Receipt Date: 20160322
  Transmission Date: 20160526
  Serious: Yes (Death, Other)
  Sender: FDA-Public Use
  Company Number: US-ASTRAZENECA-2012SE74452

PATIENT
  Age: 27167 Day
  Sex: Male
  Weight: 61.2 kg

DRUGS (9)
  1. LYRICA [Concomitant]
     Active Substance: PREGABALIN
     Dates: start: 20100902
  2. CRESTOR [Suspect]
     Active Substance: ROSUVASTATIN CALCIUM
     Indication: BLOOD CHOLESTEROL INCREASED
     Route: 048
     Dates: start: 20111206
  3. GLIPIZIDE. [Concomitant]
     Active Substance: GLIPIZIDE
     Dates: start: 20111206
  4. CRESTOR [Suspect]
     Active Substance: ROSUVASTATIN CALCIUM
     Indication: BLOOD CHOLESTEROL INCREASED
     Route: 048
     Dates: start: 2010, end: 201204
  5. ASPIRIN. [Concomitant]
     Active Substance: ASPIRIN
     Dates: start: 20111206
  6. GLIMEPIRIDE. [Concomitant]
     Active Substance: GLIMEPIRIDE
     Dates: start: 20120502
  7. ISOSORBIDE MONONITRATE. [Concomitant]
     Active Substance: ISOSORBIDE MONONITRATE
     Dates: start: 20111206
  8. PLAVIX [Concomitant]
     Active Substance: CLOPIDOGREL BISULFATE
     Dates: start: 20111206
  9. CARVEDILOL. [Concomitant]
     Active Substance: CARVEDILOL
     Dates: start: 20111206

REACTIONS (14)
  - Cardiac failure congestive [Fatal]
  - Cardiovascular disorder [Unknown]
  - Hypertension [Unknown]
  - Angina pectoris [Unknown]
  - Arrhythmia [Unknown]
  - Diabetes mellitus [Unknown]
  - Myocardial infarction [Unknown]
  - Ischaemia [Unknown]
  - Blood triglycerides increased [Unknown]
  - Ischaemic cardiomyopathy [Unknown]
  - Syncope [Unknown]
  - Pneumonitis [Fatal]
  - Coronary artery disease [Unknown]
  - Pulmonary hypertension [Unknown]

NARRATIVE: CASE EVENT DATE: 20111117
